FAERS Safety Report 25726929 (Version 1)
Quarter: 2025Q3

REPORT INFORMATION
  Report Type: Spontaneous
  Country: US (occurrence: None)
  Receive Date: 20250825
  Receipt Date: 20250825
  Transmission Date: 20251021
  Serious: Yes (Hospitalization)
  Sender: FDA-CTU
  Company Number: None

PATIENT
  Age: 81 Year
  Sex: Male

DRUGS (3)
  1. WARFARIN [Suspect]
     Active Substance: WARFARIN
  2. PREDNISONE [Suspect]
     Active Substance: PREDNISONE
  3. AZITHROMYCIN [Suspect]
     Active Substance: AZITHROMYCIN

REACTIONS (7)
  - Haemoptysis [None]
  - Contusion [None]
  - Contusion [None]
  - International normalised ratio increased [None]
  - Anaemia [None]
  - Gastrointestinal haemorrhage [None]
  - Pneumonia [None]

NARRATIVE: CASE EVENT DATE: 20220521
